FAERS Safety Report 7715252-X (Version None)
Quarter: 2011Q3

REPORT INFORMATION
  Report Type: 
  Country: None (occurrence: None)
  Receive Date: 20110829
  Receipt Date: 20110823
  Transmission Date: 20111222
  Serious: Yes (Other)
  Sender: FDA-Public Use
  Company Number: PHHY2011PT75792

PATIENT
  Sex: Female

DRUGS (1)
  1. VOLTAREN [Suspect]
     Indication: JOINT DISLOCATION
     Dosage: 50 MG, UNK
     Route: 048

REACTIONS (3)
  - EYELID OEDEMA [None]
  - OROPHARYNGEAL DISCOMFORT [None]
  - HEADACHE [None]
